FAERS Safety Report 8207517-2 (Version None)
Quarter: 2012Q1

REPORT INFORMATION
  Report Type: 
  Country: None (occurrence: None)
  Receive Date: 20120314
  Receipt Date: 20120305
  Transmission Date: 20120608
  Serious: Yes (Other)
  Sender: FDA-Public Use
  Company Number: US-BRISTOL-MYERS SQUIBB COMPANY-16432833

PATIENT
  Age: 51 Year
  Sex: Male
  Weight: 84 kg

DRUGS (2)
  1. PRAVACHOL [Suspect]
     Indication: BLOOD CHOLESTEROL ABNORMAL
  2. VYTORIN [Suspect]
     Indication: BLOOD CHOLESTEROL ABNORMAL
     Dates: start: 20060101

REACTIONS (4)
  - MENISCUS LESION [None]
  - DRUG INTOLERANCE [None]
  - ARTHRALGIA [None]
  - MYALGIA [None]
